FAERS Safety Report 21403295 (Version 2)
Quarter: 2022Q4

REPORT INFORMATION
  Report Type: Spontaneous
  Country: CN (occurrence: CN)
  Receive Date: 20221003
  Receipt Date: 20221005
  Transmission Date: 20230112
  Serious: Yes (Death, Hospitalization, Other)
  Sender: FDA-Public Use
  Company Number: CN-SANOFI-01146737

PATIENT
  Age: 73 Year

DRUGS (3)
  1. LANTUS SOLOSTAR [Suspect]
     Active Substance: INSULIN GLARGINE
     Indication: Diabetes mellitus
     Dosage: UNK
     Route: 058
     Dates: start: 202206, end: 20220704
  2. ALECTINIB [Suspect]
     Active Substance: ALECTINIB
     Indication: Lung neoplasm malignant
     Dosage: UNK
  3. METFORMIN [Concomitant]
     Active Substance: METFORMIN HYDROCHLORIDE

REACTIONS (7)
  - Pneumonia [Fatal]
  - Bedridden [Unknown]
  - Coma [Unknown]
  - Productive cough [Unknown]
  - Asthenia [Unknown]
  - Hypoglycaemia [Unknown]
  - Product storage error [Unknown]

NARRATIVE: CASE EVENT DATE: 20220614
